FAERS Safety Report 20237368 (Version 1)
Quarter: 2021Q4

REPORT INFORMATION
  Report Type: Spontaneous
  Country: US (occurrence: None)
  Receive Date: 20211227
  Receipt Date: 20211227
  Transmission Date: 20220303
  Serious: Yes (Life-Threatening, Hospitalization)
  Sender: FDA-Public Use
  Company Number: None

PATIENT
  Age: 40 Year
  Sex: Female
  Weight: 132.75 kg

DRUGS (5)
  1. RINVOQ [Suspect]
     Active Substance: UPADACITINIB
     Indication: Rheumatoid arthritis
     Dosage: FREQUENCY : DAILY;?
     Route: 048
  2. TRINESSA [Suspect]
     Active Substance: ETHINYL ESTRADIOL\NORGESTIMATE
     Indication: Contraception
     Dosage: FREQUENCY : DAILY;?
     Route: 048
  3. RINVOQ [Concomitant]
     Active Substance: UPADACITINIB
     Dates: start: 20200601, end: 20211219
  4. TRINESSA [Concomitant]
     Active Substance: ETHINYL ESTRADIOL\NORGESTIMATE
     Dates: start: 20211119, end: 20211219
  5. hydrochlorothiazide/spironolactone 25mg/25mg [Concomitant]
     Dates: end: 20211219

REACTIONS (3)
  - COVID-19 [None]
  - Deep vein thrombosis [None]
  - Treatment failure [None]

NARRATIVE: CASE EVENT DATE: 20211219
